FAERS Safety Report 10045469 (Version 1)
Quarter: 2014Q1

REPORT INFORMATION
  Report Type: Spontaneous
  Country: BR (occurrence: BR)
  Receive Date: 20140328
  Receipt Date: 20140328
  Transmission Date: 20141002
  Serious: Yes (Hospitalization, Disabling)
  Sender: FDA-Public Use
  Company Number: BR-ASTRAZENECA-2014SE19572

PATIENT
  Age: 57 Year
  Sex: Female
  Weight: 80 kg

DRUGS (4)
  1. SYMBICORT TURBUHALER [Suspect]
     Indication: ASTHMA
     Dosage: 320/9 MCG, BID
     Route: 055
     Dates: start: 2009
  2. NATRILIX [Concomitant]
     Indication: HYPERTENSION
     Dosage: EVERY MORNING
     Route: 048
  3. LOSARTANA [Concomitant]
     Indication: HYPERTENSION
     Dosage: BID
     Route: 048
  4. ARTRODAR [Concomitant]
     Indication: ARTHRITIS

REACTIONS (2)
  - Arthropathy [Not Recovered/Not Resolved]
  - Malaise [Unknown]
